FAERS Safety Report 9033327 (Version 3)
Quarter: 2013Q2

REPORT INFORMATION
  Report Type: Spontaneous
  Country: US (occurrence: US)
  Receive Date: 20130128
  Receipt Date: 20130424
  Transmission Date: 20140414
  Serious: No
  Sender: FDA-Public Use
  Company Number: US-B.I. PHARMACEUTICALS,INC./RIDGEFIELD-2013-BI-02127BP

PATIENT
  Age: 57 Year
  Sex: Female
  Weight: 79 kg

DRUGS (7)
  1. SPIRIVA [Suspect]
     Indication: CHRONIC OBSTRUCTIVE PULMONARY DISEASE
     Dosage: 18 MCG
     Route: 055
     Dates: start: 201106
  2. PROAIR [Concomitant]
     Route: 055
  3. QVAR 80 [Concomitant]
     Route: 055
  4. HYDROCORTISONE [Concomitant]
     Indication: ADRENAL INSUFFICIENCY
     Dosage: 25 MG
     Route: 048
  5. PROGESTERONE [Concomitant]
     Dosage: 1 ML
     Route: 048
  6. VIVELLE [Concomitant]
     Route: 061
  7. CLARITIN [Concomitant]
     Route: 048

REACTIONS (3)
  - Dyspnoea [Recovered/Resolved]
  - Product quality issue [Recovered/Resolved]
  - Product quality issue [Recovered/Resolved]
